FAERS Safety Report 18178238 (Version 1)
Quarter: 2020Q3

REPORT INFORMATION
  Report Type: Spontaneous
  Country: JP (occurrence: JP)
  Receive Date: 20200821
  Receipt Date: 20200821
  Transmission Date: 20201103
  Serious: Yes (Other)
  Sender: FDA-Public Use
  Company Number: JP-SUN PHARMACEUTICAL INDUSTRIES LTD-2020RR-258236

PATIENT
  Sex: Female

DRUGS (12)
  1. PACLITAXEL. [Suspect]
     Active Substance: PACLITAXEL
     Dosage: 140 MILLIGRAM/SQ. METER, TC REGIMEN, 3 CYCLES
     Route: 065
  2. PACLITAXEL. [Suspect]
     Active Substance: PACLITAXEL
     Dosage: 140 MG/M2, 2 CYCLES
     Route: 065
  3. IRINOTECAN [Suspect]
     Active Substance: IRINOTECAN
     Indication: CHEMOTHERAPY
     Dosage: 70 MG, 2 CYCLES, EVERY 3 MONTHS
     Route: 065
  4. CARBOPLATIN. [Suspect]
     Active Substance: CARBOPLATIN
     Dosage: (AUC: 4), 1 CYCLE
     Route: 065
  5. PACLITAXEL. [Suspect]
     Active Substance: PACLITAXEL
     Dosage: 140 MILLIGRAM/SQ. METER, TC REGIMEN, ONE CYCLE
     Route: 065
  6. CARBOPLATIN. [Suspect]
     Active Substance: CARBOPLATIN
     Indication: CHEMOTHERAPY
     Dosage: AREA UNDER THE CURVE (AUC): 4), 7 CYCLES
     Route: 065
  7. ERIBULIN [Suspect]
     Active Substance: ERIBULIN
     Indication: CHEMOTHERAPY
     Dosage: 1.4 MILLIGRAM/SQ. METER, 3 CYCLES
     Route: 065
  8. IFOSFAMIDE. [Suspect]
     Active Substance: IFOSFAMIDE
     Indication: CHEMOTHERAPY
     Dosage: 2 GRAM, 3 CYCLES
     Route: 065
  9. CISPLATIN. [Suspect]
     Active Substance: CISPLATIN
     Indication: CHEMOTHERAPY
     Dosage: 70 MG, 2 CYCLES, EVERY 3 MONTHS
     Route: 065
  10. CARBOPLATIN. [Suspect]
     Active Substance: CARBOPLATIN
     Dosage: (AUC: 4), 3 CYCLES
     Route: 065
  11. DOXORUBICIN [Suspect]
     Active Substance: DOXORUBICIN
     Indication: CHEMOTHERAPY
     Dosage: 30 MILLIGRAM,  3 CYCLES
     Route: 065
  12. PACLITAXEL. [Suspect]
     Active Substance: PACLITAXEL
     Indication: CHEMOTHERAPY
     Dosage: 140 MILLIGRAM/SQ. METER, TC REGIMEN, 7 CYCLES
     Route: 065

REACTIONS (6)
  - Drug ineffective [Unknown]
  - Decreased appetite [Unknown]
  - Therapeutic product effect incomplete [Unknown]
  - Diarrhoea [Unknown]
  - Fatigue [Unknown]
  - Drug resistance [Unknown]
